FAERS Safety Report 13367076 (Version 1)
Quarter: 2017Q1

REPORT INFORMATION
  Report Type: Spontaneous
  Country: CA (occurrence: CA)
  Receive Date: 20170324
  Receipt Date: 20170324
  Transmission Date: 20170429
  Serious: Yes (Life-Threatening)
  Sender: FDA-Public Use
  Company Number: CA-TEVA-751952ACC

PATIENT
  Age: 50 Year
  Sex: Male

DRUGS (3)
  1. DICLOFENAC/MISOPROSTO L [Suspect]
     Active Substance: DICLOFENAC SODIUM\MISOPROSTOL
     Indication: PAIN
     Dosage: 2 DOSAGE FORMS DAILY;
     Route: 048
  2. OXAZEPAM. [Concomitant]
     Active Substance: OXAZEPAM
  3. TRAZODONE [Concomitant]
     Active Substance: TRAZODONE HYDROCHLORIDE

REACTIONS (4)
  - Abdominal discomfort [Unknown]
  - Feeling hot [Unknown]
  - Malaise [Unknown]
  - Dyspnoea [Unknown]
